FAERS Safety Report 7705822-7 (Version None)
Quarter: 2011Q3

REPORT INFORMATION
  Report Type: 
  Country: None (occurrence: None)
  Receive Date: 20110824
  Receipt Date: 20110812
  Transmission Date: 20111222
  Serious: Yes (Other)
  Sender: FDA-Public Use
  Company Number: US-ELI_LILLY_AND_COMPANY-US201108005015

PATIENT
  Sex: Male

DRUGS (3)
  1. PROZAC [Suspect]
     Indication: BIPOLAR I DISORDER
     Dosage: UNK, UNKNOWN
     Dates: start: 19860101, end: 19890101
  2. CYMBALTA [Suspect]
     Indication: BIPOLAR I DISORDER
     Dosage: 60 MG, QD
  3. CLONAZEPAM [Concomitant]
     Indication: SLEEP DISORDER
     Dosage: UNK, BID

REACTIONS (11)
  - LOSS OF CONSCIOUSNESS [None]
  - FALL [None]
  - ASTHENIA [None]
  - DECREASED APPETITE [None]
  - BLOOD ALCOHOL INCREASED [None]
  - OFF LABEL USE [None]
  - WEIGHT DECREASED [None]
  - URINARY INCONTINENCE [None]
  - DRUG EFFECT DECREASED [None]
  - ROAD TRAFFIC ACCIDENT [None]
  - BLOOD PRESSURE DECREASED [None]
